FAERS Safety Report 16930668 (Version 6)
Quarter: 2023Q2

REPORT INFORMATION
  Report Type: Report from Study
  Country: US (occurrence: US)
  Receive Date: 20191017
  Receipt Date: 20230524
  Transmission Date: 20230721
  Serious: Yes (Other)
  Sender: FDA-Public Use
  Company Number: US-INCYTE CORPORATION-2019IN010157

PATIENT

DRUGS (12)
  1. JAKAFI [Suspect]
     Active Substance: RUXOLITINIB
     Indication: Polycythaemia
     Dosage: 5 MILLIGRAM, QD
     Route: 065
  2. JAKAFI [Suspect]
     Active Substance: RUXOLITINIB
     Indication: Myelofibrosis
     Dosage: 5 MILLIGRAM, QD
     Route: 048
  3. JAKAFI [Suspect]
     Active Substance: RUXOLITINIB
     Dosage: 5 MILLIGRAM, BID
     Route: 048
  4. JAKAFI [Suspect]
     Active Substance: RUXOLITINIB
     Dosage: 5 MILLIGRAM, BID
     Route: 065
  5. JAKAFI [Suspect]
     Active Substance: RUXOLITINIB
     Dosage: 5 MILLIGRAM, QD
     Route: 065
     Dates: start: 20230518
  6. VASOTEC [Suspect]
     Active Substance: ENALAPRIL MALEATE
     Indication: Product used for unknown indication
     Dosage: 10 MILLIGRAM
     Route: 065
  7. LEVOTHYROXINE [Concomitant]
     Active Substance: LEVOTHYROXINE
     Indication: Product used for unknown indication
     Dosage: 75 MICROGRAM
     Route: 065
  8. PEPCID                             /00706001/ [Concomitant]
     Indication: Product used for unknown indication
     Dosage: UNK, AS NEEDED
     Route: 065
  9. ZOLOFT [Concomitant]
     Active Substance: SERTRALINE HYDROCHLORIDE
     Indication: Product used for unknown indication
     Dosage: 100 MILLIGRAM
     Route: 065
  10. MULTIVITAMIN                       /07504101/ [Concomitant]
     Indication: Product used for unknown indication
     Route: 065
  11. TYLENOL [Concomitant]
     Active Substance: ACETAMINOPHEN
     Indication: Pain
     Route: 065
  12. LOPRESSOR [Concomitant]
     Active Substance: METOPROLOL TARTRATE
     Indication: Pain
     Dosage: 75 MILLIGRAM
     Route: 065

REACTIONS (10)
  - Platelet count decreased [Unknown]
  - White blood cell count increased [Unknown]
  - Red blood cell count increased [Unknown]
  - Skin discolouration [Unknown]
  - Blood potassium increased [Unknown]
  - Fatigue [Unknown]
  - Haematocrit abnormal [Unknown]
  - Depressed mood [Unknown]
  - Asthenia [Unknown]
  - Haemoglobin decreased [Unknown]
